FAERS Safety Report 5977175-6 (Version None)
Quarter: 2008Q4

REPORT INFORMATION
  Report Type: 
  Country: None (occurrence: None)
  Receive Date: 20081201
  Receipt Date: 20081201
  Transmission Date: 20090506
  Serious: Yes (Hospitalization)
  Sender: FDA-Public Use
  Company Number: None

PATIENT
  Age: 30 Year
  Sex: Male
  Weight: 111.5849 kg

DRUGS (1)
  1. ACCUTANE [Suspect]
     Indication: ACNE
     Dates: start: 19950101, end: 19960101

REACTIONS (3)
  - CROHN'S DISEASE [None]
  - LARGE INTESTINAL OBSTRUCTION [None]
  - RECTAL HAEMORRHAGE [None]
